FAERS Safety Report 6436770-0 (Version None)
Quarter: 2009Q4

REPORT INFORMATION
  Report Type: 
  Country: None (occurrence: None)
  Receive Date: 20091109
  Receipt Date: 20091027
  Transmission Date: 20100525
  Serious: Yes (Hospitalization, Other)
  Sender: FDA-Public Use
  Company Number: 09-001701

PATIENT
  Age: 52 Year
  Sex: Female
  Weight: 54.4 kg

DRUGS (3)
  1. ESTRACE [Suspect]
     Indication: VULVOVAGINAL DRYNESS
     Dosage: QD, OUTER VAGINAL, TOPICAL
     Route: 061
     Dates: start: 20091007, end: 20091001
  2. VIVELLE-DOT [Suspect]
     Indication: MENOPAUSE
     Dosage: TRANSDERMAL
     Route: 062
     Dates: start: 20080101, end: 20091001
  3. VITAMIN E (TOCOPHERYL ACETATE) [Concomitant]

REACTIONS (6)
  - DIZZINESS [None]
  - HEADACHE [None]
  - HYPERTENSION [None]
  - LOSS OF CONSCIOUSNESS [None]
  - SPEECH DISORDER [None]
  - TRANSIENT ISCHAEMIC ATTACK [None]
